FAERS Safety Report 7392692-2 (Version None)
Quarter: 2011Q2

REPORT INFORMATION
  Report Type: 
  Country: None (occurrence: None)
  Receive Date: 20110404
  Receipt Date: 20110331
  Transmission Date: 20111010
  Serious: Yes (Other)
  Sender: FDA-Public Use
  Company Number: US-PFIZER INC-2011072332

PATIENT
  Sex: Female
  Weight: 79.365 kg

DRUGS (1)
  1. ZOLOFT [Suspect]
     Indication: PREMENSTRUAL SYNDROME
     Dosage: 50 MG, DAILY
     Route: 048
     Dates: start: 20090101, end: 20110330

REACTIONS (4)
  - AGITATION [None]
  - FEELING HOT [None]
  - NAUSEA [None]
  - DIZZINESS [None]
